FAERS Safety Report 18197668 (Version 2)
Quarter: 2020Q4

REPORT INFORMATION
  Report Type: Spontaneous
  Country: US (occurrence: US)
  Receive Date: 20200826
  Receipt Date: 20201021
  Transmission Date: 20210113
  Serious: No
  Sender: FDA-Public Use
  Company Number: US-PFIZER INC-2020328937

PATIENT
  Age: 54 Year
  Sex: Female

DRUGS (1)
  1. INLYTA [Suspect]
     Active Substance: AXITINIB
     Dosage: 5 MG
     Dates: start: 20200625, end: 2020

REACTIONS (2)
  - Rash [Unknown]
  - Fracture [Unknown]

NARRATIVE: CASE EVENT DATE: 2020
